FAERS Safety Report 9748782 (Version 1)
Quarter: 2013Q4

REPORT INFORMATION
  Report Type: Spontaneous
  Country: US (occurrence: None)
  Receive Date: 20131211
  Receipt Date: 20131211
  Transmission Date: 20140711
  Serious: No
  Sender: FDA-Public Use
  Company Number: None

PATIENT
  Age: 49 Year
  Sex: Male
  Weight: 108.2 kg

DRUGS (2)
  1. LISINOPRIL [Suspect]
     Indication: HYPERTENSION
     Route: 048
     Dates: start: 201104, end: 201312
  2. LISINOPRIL [Suspect]
     Indication: RENAL DISORDER
     Route: 048
     Dates: start: 201104, end: 201312

REACTIONS (1)
  - Angioedema [None]
